FAERS Safety Report 7325448-7 (Version None)
Quarter: 2011Q1

REPORT INFORMATION
  Report Type: 
  Country: None (occurrence: None)
  Receive Date: 20110218
  Receipt Date: 20110209
  Transmission Date: 20110831
  Serious: Yes (Other)
  Sender: FDA-Public Use
  Company Number: DE-1184555

PATIENT
  Sex: Male

DRUGS (1)
  1. AZOPT [Suspect]
     Indication: INTRAOCULAR PRESSURE INCREASED
     Dosage: (2 TIMES PER DAY OPHTHALMIC) (3 TIMES PER DAY OPHTHALMIC)
     Route: 047
     Dates: start: 20090101

REACTIONS (2)
  - DISEASE PROGRESSION [None]
  - OPTIC NERVE DISORDER [None]
